FAERS Safety Report 7495446-1 (Version None)
Quarter: 2011Q2

REPORT INFORMATION
  Report Type: 
  Country: None (occurrence: None)
  Receive Date: 20110523
  Receipt Date: 20110503
  Transmission Date: 20111010
  Serious: No
  Sender: FDA-Public Use
  Company Number: US-TYCO HEALTHCARE/MALLINCKRODT-T201100892

PATIENT
  Sex: Male

DRUGS (2)
  1. MAXZIDE [Concomitant]
     Dosage: 1/2 TAB QAM
  2. FENTANYL-100 [Suspect]
     Indication: PAIN
     Dosage: 75 UG/HR, Q 72 HOURS
     Route: 062

REACTIONS (2)
  - DRUG INEFFECTIVE [None]
  - APPLICATION SITE REACTION [None]
